FAERS Safety Report 8505354-2 (Version None)
Quarter: 2012Q3

REPORT INFORMATION
  Report Type: 
  Country: None (occurrence: None)
  Receive Date: 20120712
  Receipt Date: 20120706
  Transmission Date: 20120928
  Serious: Yes (Hospitalization)
  Sender: FDA-Public Use
  Company Number: US-BAYER-201018638NA

PATIENT
  Age: 19 Year
  Sex: Female
  Weight: 138.32 kg

DRUGS (18)
  1. HYDROCHLOROTHIAZIDE [Concomitant]
     Indication: HYPERTENSION
     Dosage: UNK UNK, UNK
     Route: 065
     Dates: start: 20060101
  2. TOPAMAX [Concomitant]
     Route: 065
     Dates: start: 20080220
  3. I.V. SOLUTIONS [Concomitant]
  4. YAZ [Suspect]
     Indication: ORAL CONTRACEPTION
     Route: 048
     Dates: start: 20080101, end: 20080301
  5. WELLBUTRIN [Concomitant]
  6. IBUPROFEN (ADVIL) [Concomitant]
  7. BUPROPION HYDROCHLORIDE [Concomitant]
  8. FLUCONAZOLE [Concomitant]
     Route: 065
     Dates: start: 20080103
  9. METRONIDAZOLE [Concomitant]
     Route: 065
     Dates: start: 20080220
  10. LORTAB [Concomitant]
     Indication: PAIN IN EXTREMITY
     Dosage: EVERY 6 HOURS AS NEEDED
     Route: 065
  11. CYMBALTA [Concomitant]
     Route: 065
  12. VITAMIN K TAB [Concomitant]
     Route: 058
  13. POTASSIUM CHLORIDE [Concomitant]
     Route: 065
     Dates: start: 20080401
  14. HYDROCHLOROTHIAZIDE [Concomitant]
     Dosage: UNK
     Dates: start: 20080220
  15. NEXIUM [Concomitant]
     Dosage: DAILY DOSE 40 MG
     Route: 048
     Dates: start: 20080501
  16. LASIX [Concomitant]
     Dosage: DAILY DOSE 20 MG
     Route: 065
     Dates: start: 20080401
  17. ZOFRAN [Concomitant]
     Route: 042
  18. MULTI-VITAMINS [Concomitant]
     Dosage: DAILY
     Route: 065

REACTIONS (11)
  - CYANOSIS [None]
  - ABDOMINAL PAIN UPPER [None]
  - BACK PAIN [None]
  - CHOLESTEROSIS [None]
  - DYSPNOEA [None]
  - FEELING HOT [None]
  - ERYTHEMA [None]
  - OEDEMA PERIPHERAL [None]
  - DEEP VEIN THROMBOSIS [None]
  - PULMONARY EMBOLISM [None]
  - CHOLECYSTITIS CHRONIC [None]
